FAERS Safety Report 9998216 (Version 1)
Quarter: 2014Q1

REPORT INFORMATION
  Report Type: Spontaneous
  Country: US (occurrence: US)
  Receive Date: 20140311
  Receipt Date: 20140311
  Transmission Date: 20141002
  Serious: Yes (Other)
  Sender: FDA-Public Use
  Company Number: US-RB-064354-14

PATIENT
  Age: 23 Year
  Sex: Male

DRUGS (1)
  1. SUBOXONE UNSPECIFIED [Suspect]
     Indication: PRODUCT USED FOR UNKNOWN INDICATION
     Dosage: DOSING DETAILS UNKNOWN
     Route: 065

REACTIONS (4)
  - Cardiac arrest [Recovered/Resolved]
  - Substance abuse [Recovered/Resolved]
  - Foaming at mouth [Recovered/Resolved]
  - Depressed mood [Recovered/Resolved]
